FAERS Safety Report 6981777-8 (Version None)
Quarter: 2010Q3

REPORT INFORMATION
  Report Type: 
  Country: None (occurrence: None)
  Receive Date: 20100914
  Receipt Date: 20091012
  Transmission Date: 20110219
  Serious: Yes (Other)
  Sender: FDA-Public Use
  Company Number: US-PFIZER INC-2009260551

PATIENT
  Sex: Female
  Weight: 100.23 kg

DRUGS (3)
  1. LYRICA [Suspect]
     Indication: FIBROMYALGIA
     Dosage: UNK
     Route: 048
     Dates: end: 20090825
  2. HYDROCHLOROTHIAZIDE [Concomitant]
     Dosage: UNK
  3. LASIX [Concomitant]
     Dosage: UNK

REACTIONS (8)
  - BLOOD CHLORIDE INCREASED [None]
  - BLOOD CREATININE INCREASED [None]
  - BLOOD UREA INCREASED [None]
  - FLUID RETENTION [None]
  - OEDEMA [None]
  - OEDEMA PERIPHERAL [None]
  - PAIN [None]
  - WEIGHT INCREASED [None]
